FAERS Safety Report 8353921 (Version 2)
Quarter: 2015Q1

REPORT INFORMATION
  Report Type: Report from Study
  Country: US (occurrence: US)
  Receive Date: 20120125
  Receipt Date: 20150226
  Transmission Date: 20150721
  Serious: Yes (Death)
  Sender: FDA-Public Use
  Company Number: US-ROCHE-1033316

PATIENT
  Age: 43 Year
  Sex: Male
  Weight: 77.7 kg

DRUGS (13)
  1. DECADRON [Concomitant]
     Active Substance: DEXAMETHASONE
     Route: 048
  2. DECADRON [Concomitant]
     Active Substance: DEXAMETHASONE
     Route: 065
  3. IRINOTECAN [Suspect]
     Active Substance: IRINOTECAN
     Indication: PRODUCT USED FOR UNKNOWN INDICATION
     Route: 042
  4. IRINOTECAN [Suspect]
     Active Substance: IRINOTECAN
     Route: 042
  5. DEXAMETHASONE. [Concomitant]
     Active Substance: DEXAMETHASONE
     Route: 065
  6. AVASTIN [Suspect]
     Active Substance: BEVACIZUMAB
     Indication: BRAIN NEOPLASM MALIGNANT
     Route: 042
     Dates: start: 20080211
  7. TPA [Concomitant]
     Active Substance: ALTEPLASE
     Route: 065
  8. DECADRON [Concomitant]
     Active Substance: DEXAMETHASONE
     Route: 042
  9. AVASTIN [Suspect]
     Active Substance: BEVACIZUMAB
     Route: 042
  10. DECADRON [Concomitant]
     Active Substance: DEXAMETHASONE
     Route: 048
  11. ATROPINE [Concomitant]
     Active Substance: ATROPINE
     Route: 042
  12. PHENYTOIN. [Concomitant]
     Active Substance: PHENYTOIN
     Route: 065
  13. ALOXI [Concomitant]
     Active Substance: PALONOSETRON HYDROCHLORIDE
     Route: 042

REACTIONS (17)
  - Central nervous system necrosis [Unknown]
  - Nausea [Unknown]
  - Haematuria [Unknown]
  - Gingival swelling [Unknown]
  - Decreased appetite [Unknown]
  - Dysphagia [Unknown]
  - Oropharyngeal pain [Unknown]
  - Off label use [Unknown]
  - Death [Fatal]
  - Mucosal inflammation [Unknown]
  - Stomatitis [Unknown]
  - Dysphonia [Unknown]
  - Malaise [Unknown]
  - Diarrhoea [Recovering/Resolving]
  - Vomiting [Recovered/Resolved]
  - Fatigue [Unknown]
  - Dysuria [Unknown]

NARRATIVE: CASE EVENT DATE: 20080618
